FAERS Safety Report 19596442 (Version 2)
Quarter: 2021Q4

REPORT INFORMATION
  Report Type: Spontaneous
  Country: CA (occurrence: CA)
  Receive Date: 20210723
  Receipt Date: 20211130
  Transmission Date: 20220303
  Serious: Yes (Hospitalization)
  Sender: FDA-Public Use
  Company Number: CA-DRREDDYS-LIT/CAN/21/0138003

PATIENT
  Age: 63 Year
  Sex: Male

DRUGS (7)
  1. FONDAPARINUX SODIUM [Suspect]
     Active Substance: FONDAPARINUX SODIUM
     Indication: Pulmonary artery thrombosis
     Route: 058
  2. FONDAPARINUX SODIUM [Suspect]
     Active Substance: FONDAPARINUX SODIUM
     Indication: Thrombosis
  3. HEPARIN [Concomitant]
     Active Substance: HEPARIN SODIUM
     Indication: Pulmonary artery thrombosis
     Route: 042
  4. HEPARIN [Concomitant]
     Active Substance: HEPARIN SODIUM
     Indication: Anticoagulant therapy
  5. ALTEPLASE [Concomitant]
     Active Substance: ALTEPLASE
     Indication: Pulmonary artery thrombosis
     Route: 013
  6. IMMUNOGLOBULIN (HUMAN) [Concomitant]
     Indication: Thrombosis
  7. IMMUNOGLOBULIN (HUMAN) [Concomitant]
     Indication: Immune thrombocytopenia

REACTIONS (1)
  - Drug ineffective [Unknown]
